FAERS Safety Report 9799434 (Version 2)
Quarter: 2014Q1

REPORT INFORMATION
  Report Type: Spontaneous
  Country: US (occurrence: US)
  Receive Date: 20140106
  Receipt Date: 20140115
  Transmission Date: 20141002
  Serious: No
  Sender: FDA-Public Use
  Company Number: US-PFIZER INC-2013374811

PATIENT
  Age: 70 Year
  Sex: Female

DRUGS (14)
  1. LYRICA [Suspect]
     Indication: FIBROMYALGIA
     Dosage: 100 MG, 3X/DAY
     Route: 048
     Dates: start: 2012
  2. LYRICA [Suspect]
     Dosage: 100 MG, 2X/DAY (1 TAB BID)
  3. AMITRIPTYLINE [Concomitant]
     Dosage: UNK
  4. ASA [Concomitant]
     Dosage: UNK
  5. SIMVASTATIN [Concomitant]
     Dosage: UNK
  6. FLUOXETINE [Concomitant]
     Dosage: UNK
  7. ALBUTEROL [Concomitant]
     Dosage: UNK
  8. LISINOPRIL [Concomitant]
     Dosage: UNK
  9. HYDROCHLOROTHIAZIDE [Concomitant]
     Dosage: UNK
  10. MORPHINE [Concomitant]
     Dosage: UNK
  11. PROPRANOLOL [Concomitant]
     Dosage: UNK
  12. METFORMIN [Concomitant]
     Dosage: UNK
  13. MELOXICAM [Concomitant]
     Dosage: UNK
  14. CYMBALTA [Concomitant]
     Dosage: UNK

REACTIONS (1)
  - Malaise [Unknown]
